FAERS Safety Report 23396282 (Version 1)
Quarter: 2024Q1

REPORT INFORMATION
  Report Type: Spontaneous
  Country: IT (occurrence: IT)
  Receive Date: 20240112
  Receipt Date: 20240112
  Transmission Date: 20240409
  Serious: Yes (Hospitalization)
  Sender: FDA-Public Use
  Company Number: IT-MINISAL02-943685

PATIENT
  Age: 78 Year
  Sex: Female

DRUGS (9)
  1. MORPHINE [Suspect]
     Active Substance: MORPHINE
     Indication: Pain in extremity
     Dosage: 5MG SUBCUTANEOUSLY (A SINGLE ADMINISTRATION AT 11.30 AM ON 4.8.2023)
     Route: 058
     Dates: start: 20230804
  2. MORPHINE [Suspect]
     Active Substance: MORPHINE
     Indication: Pain in extremity
  3. INDAPAMIDE\PERINDOPRIL [Concomitant]
     Active Substance: INDAPAMIDE\PERINDOPRIL
     Indication: Hypertension
     Dosage: 5/1,25 /DAY
     Route: 048
  4. MESALAMINE [Concomitant]
     Active Substance: MESALAMINE
     Indication: Diarrhoea
     Dosage: 800MG/DAY
     Route: 048
  5. TIROSINT [Concomitant]
     Active Substance: LEVOTHYROXINE SODIUM
     Indication: Hypothyroidism
     Dosage: 100MCG ALTERNATED WITH 75MCG / DAY
     Route: 048
  6. EZETIMIBE\ROSUVASTATIN CALCIUM [Concomitant]
     Active Substance: EZETIMIBE\ROSUVASTATIN CALCIUM
     Indication: Hypercholesterolaemia
     Dosage: 5/10MG/DAY
     Route: 048
  7. BISOPROLOL [Concomitant]
     Active Substance: BISOPROLOL\BISOPROLOL FUMARATE
     Indication: Hypertension
     Dosage: 1.25 MILLIGRAM, QD
     Route: 048
  8. COLESTIRAMIN [Concomitant]
     Indication: Hypercholesterolaemia
     Dosage: 4 GRAM, QD
     Route: 048
  9. PALEXIA [Concomitant]
     Active Substance: TAPENTADOL HYDROCHLORIDE
     Indication: Spinal pain
     Dosage: 50MG /2 TIMES DAILY
     Route: 048

REACTIONS (5)
  - Pyrexia [Recovered/Resolved]
  - Syncope [Recovered/Resolved]
  - Sphincter of Oddi dysfunction [Recovered/Resolved]
  - Headache [Recovered/Resolved]
  - Vomiting [Recovered/Resolved]

NARRATIVE: CASE EVENT DATE: 20230804
